FAERS Safety Report 9714541 (Version 2)
Quarter: 2014Q1

REPORT INFORMATION
  Report Type: Spontaneous
  Country: JP (occurrence: JP)
  Receive Date: 20131126
  Receipt Date: 20140114
  Transmission Date: 20141002
  Serious: Yes (Death, Other)
  Sender: FDA-Public Use
  Company Number: JP-CUBIST PHARMACEUTICAL, INC.-2013CBST001182

PATIENT
  Sex: 0

DRUGS (5)
  1. CUBICIN [Suspect]
     Indication: ENDOCARDITIS STAPHYLOCOCCAL
     Dosage: 280 MG, QOD
     Route: 041
     Dates: start: 20130314
  2. CUBICIN [Suspect]
     Indication: OFF LABEL USE
     Dosage: 5.9 MG/KG, QOD
     Route: 065
     Dates: start: 20130314
  3. CUBICIN [Suspect]
     Dosage: 6.2 MG/KG, QD
     Route: 065
     Dates: end: 20130324
  4. LINEZOLID [Concomitant]
     Indication: ENDOCARDITIS STAPHYLOCOCCAL
     Dosage: 1200 MG, QD
     Route: 065
  5. TEICOPLANIN [Concomitant]
     Indication: ENDOCARDITIS STAPHYLOCOCCAL
     Dosage: 800 MG, QD
     Route: 065

REACTIONS (4)
  - Cardiac failure [Fatal]
  - Interstitial lung disease [Recovering/Resolving]
  - Drug ineffective for unapproved indication [Recovering/Resolving]
  - Overdose [Recovered/Resolved]
